FAERS Safety Report 9718982 (Version 1)
Quarter: 2013Q4

REPORT INFORMATION
  Report Type: Spontaneous
  Country: US (occurrence: US)
  Receive Date: 20131127
  Receipt Date: 20131127
  Transmission Date: 20140711
  Serious: No
  Sender: FDA-Public Use
  Company Number: US-B.I. PHARMACEUTICALS,INC./RIDGEFIELD-2013-BI-37769BP

PATIENT
  Sex: Female
  Weight: 66 kg

DRUGS (7)
  1. SPIRIVA [Suspect]
     Indication: LUNG NEOPLASM MALIGNANT
     Dosage: 18 MCG
     Route: 055
     Dates: start: 2011
  2. BUDESONIDE/IPRATROPIUM [Concomitant]
     Indication: LUNG NEOPLASM MALIGNANT
     Route: 055
     Dates: start: 2011
  3. LORTAB [Concomitant]
     Indication: ARTHRITIS
     Dosage: 10 MG
     Route: 048
     Dates: start: 2005
  4. NORVASC [Concomitant]
     Indication: HYPERTENSION
     Dosage: 10 MG
     Route: 048
     Dates: start: 2003
  5. XANAX [Concomitant]
     Indication: SLEEP DISORDER
     Dosage: 1 MG
     Route: 048
     Dates: start: 2004
  6. XANAX [Concomitant]
     Indication: NERVOUSNESS
  7. NORTRIPTYLINE [Concomitant]
     Indication: SLEEP DISORDER
     Dosage: 25 MG
     Route: 048
     Dates: start: 2004

REACTIONS (4)
  - Cataract [Not Recovered/Not Resolved]
  - Urinary retention [Not Recovered/Not Resolved]
  - Visual impairment [Not Recovered/Not Resolved]
  - Off label use [Not Recovered/Not Resolved]
